FAERS Safety Report 9746946 (Version 1)
Quarter: 2013Q4

REPORT INFORMATION
  Report Type: Spontaneous
  Country: RO (occurrence: RO)
  Receive Date: 20131211
  Receipt Date: 20131211
  Transmission Date: 20140711
  Serious: Yes (Hospitalization)
  Sender: FDA-Public Use
  Company Number: RO-ABBVIE-13P-135-1176028-00

PATIENT
  Age: 71 Year
  Sex: Male
  Weight: 80 kg

DRUGS (5)
  1. HUMIRA [Suspect]
     Indication: PSORIASIS
     Route: 058
     Dates: start: 201205, end: 20131015
  2. HUMIRA [Suspect]
     Dates: start: 201311
  3. ENALAPRIL [Concomitant]
     Indication: EXTRASYSTOLES
     Route: 048
  4. TRIMETAZIDINE [Concomitant]
     Indication: HYPERTENSION
     Route: 048
  5. CONCOR [Concomitant]
     Indication: HYPERTENSION
     Route: 048

REACTIONS (2)
  - Urinary retention [Recovering/Resolving]
  - Prostatic adenoma [Recovering/Resolving]
